FAERS Safety Report 11898945 (Version 6)
Quarter: 2016Q2

REPORT INFORMATION
  Report Type: Spontaneous
  Country: US (occurrence: US)
  Receive Date: 20160108
  Receipt Date: 20160404
  Transmission Date: 20160815
  Serious: No
  Sender: FDA-Public Use
  Company Number: US-PFIZER INC-2015446424

PATIENT
  Age: 73 Year
  Sex: Male
  Weight: 100 kg

DRUGS (8)
  1. LIPITOR [Concomitant]
     Active Substance: ATORVASTATIN CALCIUM
     Indication: BLOOD CHOLESTEROL INCREASED
     Dosage: 80 MG, UNK
     Dates: start: 198710
  2. CLONAZEPAM. [Concomitant]
     Active Substance: CLONAZEPAM
     Indication: RESTLESS LEGS SYNDROME
  3. METOPROLOL. [Concomitant]
     Active Substance: METOPROLOL
     Dosage: 25 MG, 1X/DAY
     Dates: start: 199003
  4. COATED ASPIRIN [Suspect]
     Active Substance: ASPIRIN
     Dosage: UNK
  5. ASPIRIN. [Concomitant]
     Active Substance: ASPIRIN
     Indication: ANTICOAGULANT THERAPY
     Dosage: 325 MG, 1X/DAY
     Dates: start: 198710
  6. FLECTOR [Suspect]
     Active Substance: DICLOFENAC EPOLAMINE
     Indication: ROTATOR CUFF SYNDROME
     Dosage: 1.3 %, UNK
     Route: 062
     Dates: start: 201512, end: 201601
  7. LOSARTAN POTASSIUM. [Concomitant]
     Active Substance: LOSARTAN POTASSIUM
     Dosage: 50 MG, 1X/DAY
     Dates: start: 200902
  8. CLONAZEPAM. [Concomitant]
     Active Substance: CLONAZEPAM
     Indication: SLEEP APNOEA SYNDROME
     Dosage: 2 MG (2 TABLETS), 1X/DAY
     Dates: start: 201004

REACTIONS (4)
  - Drug ineffective [Unknown]
  - Drug prescribing error [Unknown]
  - Product adhesion issue [Unknown]
  - Product use issue [None]

NARRATIVE: CASE EVENT DATE: 201406
